FAERS Safety Report 18481826 (Version 2)
Quarter: 2020Q4

REPORT INFORMATION
  Report Type: Report from Study
  Country: US (occurrence: US)
  Receive Date: 20201109
  Receipt Date: 20201118
  Transmission Date: 20210114
  Serious: No
  Sender: FDA-Public Use
  Company Number: US-ELI_LILLY_AND_COMPANY-US202011002478

PATIENT
  Sex: Male

DRUGS (2)
  1. SOMATROPIN. [Suspect]
     Active Substance: SOMATROPIN
     Indication: HYPOPITUITARISM
     Dosage: 1 MG, DAILY
     Route: 058
     Dates: start: 201606, end: 2017
  2. SOMATROPIN. [Suspect]
     Active Substance: SOMATROPIN
     Dosage: 1 MG, 6 TIMES A WEEK
     Route: 058
     Dates: start: 202010

REACTIONS (1)
  - Mood altered [Unknown]
